FAERS Safety Report 6418145-3 (Version None)
Quarter: 2009Q4

REPORT INFORMATION
  Report Type: 
  Country: None (occurrence: None)
  Receive Date: 20091028
  Receipt Date: 20091021
  Transmission Date: 20100525
  Serious: Yes (Other)
  Sender: FDA-Public Use
  Company Number: US-ABBOTT-09P-163-0597914-00

PATIENT
  Sex: Female
  Weight: 102.6 kg

DRUGS (4)
  1. HUMIRA [Suspect]
     Indication: PSORIASIS
     Route: 058
     Dates: start: 20090101
  2. HUMIRA [Suspect]
     Indication: PSORIATIC ARTHROPATHY
     Dosage: SYRINGE
     Dates: start: 20070801, end: 20090101
  3. PORTIA BC PILL [Suspect]
     Indication: CONTRACEPTION
     Dates: start: 20090601, end: 20090911
  4. UNNAMED BC PILL [Concomitant]
     Indication: DRUG USE FOR UNKNOWN INDICATION
     Dates: start: 19820101, end: 20090601

REACTIONS (1)
  - DEEP VEIN THROMBOSIS [None]
